FAERS Safety Report 13299000 (Version 4)
Quarter: 2017Q2

REPORT INFORMATION
  Report Type: Report from Study
  Country: CA (occurrence: CA)
  Receive Date: 20170306
  Receipt Date: 20170515
  Transmission Date: 20170830
  Serious: Yes (Other)
  Sender: FDA-Public Use
  Company Number: CA-TAKEDA-2017TUS004363

PATIENT
  Age: 68 Year
  Sex: Male

DRUGS (25)
  1. RATIO-CODEINE [Concomitant]
     Indication: CROHN^S DISEASE
     Dosage: 30 MG, QID
  2. NOVOPREDNISONE [Concomitant]
     Indication: PROPHYLAXIS AGAINST TRANSPLANT REJECTION
     Dosage: 5 MG, QD
  3. PRAXIS ASA EC [Concomitant]
     Indication: THROMBOSIS PROPHYLAXIS
     Dosage: 81 MG, QD
  4. MILK THISTLE PLUS [Concomitant]
     Indication: PROPHYLAXIS
     Dosage: 150 MG, QD
  5. CURCUMIN [Concomitant]
     Active Substance: CURCUMIN
     Indication: ARTHRALGIA
     Dosage: 83 MG, QD
  6. VEDOLIZUMAB [Suspect]
     Active Substance: VEDOLIZUMAB
     Indication: CROHN^S DISEASE
     Dosage: 300 MG, UNK
     Route: 042
     Dates: start: 20161027
  7. COENZYME Q10 [Concomitant]
     Active Substance: UBIDECARENONE
     Indication: MUSCULOSKELETAL STIFFNESS
     Dosage: 100 MG, QD
  8. VEDOLIZUMAB [Suspect]
     Active Substance: VEDOLIZUMAB
     Dosage: 300 MG, Q4WEEKS
     Route: 042
     Dates: start: 20170227
  9. SDZ VITAMIN B 12 [Concomitant]
     Indication: VITAMIN B12 DEFICIENCY
     Dosage: UNK, MONTHLY
  10. SANDOZ-TAMSULOSIN [Concomitant]
     Active Substance: TAMSULOSIN
     Indication: MICTURITION URGENCY
     Dosage: 0.4 MG, QD
  11. MAGNESIUM [Concomitant]
     Active Substance: MAGNESIUM
     Indication: BLOOD MAGNESIUM DECREASED
     Dosage: 500 MG, BID
  12. CELLCEPT [Concomitant]
     Active Substance: MYCOPHENOLATE MOFETIL\MYCOPHENOLATE MOFETIL HYDROCHLORIDE
     Indication: PROPHYLAXIS AGAINST TRANSPLANT REJECTION
     Dosage: UNK, BID
  13. TETRACYCLINE [Concomitant]
     Active Substance: TETRACYCLINE
     Indication: ACNE
     Dosage: 250 MG, BID
  14. SANDOZ-TAMSULOSIN [Concomitant]
     Active Substance: TAMSULOSIN
     Indication: POLLAKIURIA
  15. SANDOZ-TAMSULOSIN [Concomitant]
     Active Substance: TAMSULOSIN
     Indication: PROPHYLAXIS
  16. METFORMIN [Concomitant]
     Active Substance: METFORMIN HYDROCHLORIDE
     Indication: DIABETES MELLITUS
     Dosage: 500 MG, UNK
  17. NOVO-TRIMEL DS [Concomitant]
     Indication: INFECTION PROPHYLAXIS
     Dosage: 800MG/160MG, 3/WEEK
  18. CURCUMIN [Concomitant]
     Active Substance: CURCUMIN
     Indication: MYALGIA
  19. MILK THISTLE PLUS [Concomitant]
     Indication: DRUG DETOXIFICATION
  20. VITAMIN D [Concomitant]
     Active Substance: CHOLECALCIFEROL
     Indication: OSTEOARTHRITIS
     Dosage: 1000 IU, QID
  21. ALDARA [Concomitant]
     Active Substance: IMIQUIMOD
     Indication: ACTINIC KERATOSIS
     Dosage: UNK
  22. PMS REPAGLINIDE [Concomitant]
     Indication: TYPE 2 DIABETES MELLITUS
     Dosage: 1 MG, UNK
  23. PMS RAMIPRIL HCTZ [Concomitant]
     Indication: BLOOD PRESSURE MANAGEMENT
     Dosage: 5 MG, BID
  24. APO OMEPRAZOLE [Concomitant]
     Indication: GASTROOESOPHAGEAL REFLUX PROPHYLAXIS
     Dosage: 20 MG, QD
  25. GLUCOSAMINE [Concomitant]
     Active Substance: GLUCOSAMINE
     Indication: JOINT STIFFNESS
     Dosage: 500 MG, BID

REACTIONS (3)
  - Intestinal obstruction [Unknown]
  - Postoperative wound infection [Unknown]
  - Inappropriate schedule of drug administration [Unknown]

NARRATIVE: CASE EVENT DATE: 2017
